FAERS Safety Report 5849196-5 (Version None)
Quarter: 2008Q3

REPORT INFORMATION
  Report Type: 
  Country: None (occurrence: None)
  Receive Date: 20080819
  Receipt Date: 20080812
  Transmission Date: 20090109
  Serious: Yes (Hospitalization)
  Sender: FDA-Public Use
  Company Number: BR-JNJFOC-20080803396

PATIENT
  Age: 8 Year
  Sex: Male

DRUGS (2)
  1. RISPERDAL [Suspect]
     Indication: ANXIETY
     Route: 048
  2. AMOXCILLIN PLUS CLAVULANIC ACID [Concomitant]
     Indication: SINUSITIS
     Dosage: 10 ML EVERY 12 HOURLY FOR 14 DAYS AND PATIENT WAS ONTHE 5TH DAY OF TREATMENT.
     Route: 048

REACTIONS (4)
  - HYPERHIDROSIS [None]
  - INCORRECT DOSE ADMINISTERED [None]
  - MEDICATION ERROR [None]
  - SOMNOLENCE [None]
